FAERS Safety Report 11948138 (Version 1)
Quarter: 2016Q1

REPORT INFORMATION
  Report Type: Spontaneous
  Country: SE (occurrence: SE)
  Receive Date: 20160125
  Receipt Date: 20160125
  Transmission Date: 20160526
  Serious: Yes (Other)
  Sender: FDA-Public Use
  Company Number: SE-ASTRAZENECA-2016SE06564

PATIENT
  Age: 71 Year
  Sex: Female

DRUGS (15)
  1. CALCICHEW [Concomitant]
     Active Substance: CALCIUM CARBONATE
  2. LAXOBERAL [Concomitant]
     Active Substance: SODIUM PICOSULFATE
  3. MONTELUKAST [Concomitant]
     Active Substance: MONTELUKAST SODIUM
  4. SYMBICORT [Concomitant]
     Active Substance: BUDESONIDE\FORMOTEROL FUMARATE DIHYDRATE
  5. TROMBYL [Concomitant]
     Active Substance: ASPIRIN
  6. VAGIFEM [Concomitant]
     Active Substance: ESTRADIOL
  7. PAPAVERINE [Concomitant]
     Active Substance: PAPAVERINE
  8. EKLIRA GENUAIR [Suspect]
     Active Substance: ACLIDINIUM BROMIDE
     Indication: ASTHMA
     Route: 055
     Dates: start: 20151201, end: 20160112
  9. RHINOCORT [Concomitant]
     Active Substance: BUDESONIDE
  10. SERTRALINE [Concomitant]
     Active Substance: SERTRALINE HYDROCHLORIDE
  11. ESOMEPRAZOLE [Concomitant]
     Active Substance: ESOMEPRAZOLE
  12. SIMVASTATIN. [Concomitant]
     Active Substance: SIMVASTATIN
  13. BRICANYL [Concomitant]
     Active Substance: TERBUTALINE SULFATE
  14. LORATADINE. [Concomitant]
     Active Substance: LORATADINE
  15. OCULAC [Concomitant]

REACTIONS (1)
  - Dyspnoea [Recovered/Resolved]

NARRATIVE: CASE EVENT DATE: 201512
